FAERS Safety Report 4335676-0 (Version None)
Quarter: 2004Q2

REPORT INFORMATION
  Report Type: 
  Country: None (occurrence: None)
  Receive Date: 20040409
  Receipt Date: 20040401
  Transmission Date: 20050107
  Serious: Yes (Other)
  Sender: FDA-Public Use
  Company Number: US-GLAXOSMITHKLINE-A0505616A

PATIENT
  Age: 17 Year
  Sex: Female

DRUGS (1)
  1. PAXIL CR [Suspect]
     Indication: PANIC ATTACK
     Route: 048

REACTIONS (3)
  - DEPRESSION [None]
  - MENTAL DISORDER [None]
  - SUICIDAL IDEATION [None]
